FAERS Safety Report 6507678 (Version 5)
Quarter: 2013Q1

REPORT INFORMATION
  Report Type: Report from Study
  Country: US (occurrence: US)
  Receive Date: 20071218
  Receipt Date: 20130117
  Transmission Date: 20140127
  Serious: Yes (Other)
  Sender: FDA-Public Use
  Company Number: US-JNJFOC-20071201106

PATIENT
  Age: 63 Year
  Sex: Male
  Weight: 65.77 kg

DRUGS (8)
  1. CISAPRIDE [Suspect]
     Indication: GASTROOESOPHAGEAL REFLUX DISEASE
     Route: 048
     Dates: start: 20010209, end: 20061211
  2. CISAPRIDE [Suspect]
     Indication: GASTROINTESTINAL DISORDER
     Route: 048
     Dates: start: 20010209, end: 20061211
  3. ULTRAM [Concomitant]
     Dates: start: 20020605
  4. MIRALAX [Concomitant]
     Indication: CONSTIPATION
     Dates: start: 20020605
  5. PROTONIX [Concomitant]
     Indication: GASTROOESOPHAGEAL REFLUX DISEASE
     Dates: start: 20030113
  6. DOCUSATE [Concomitant]
     Indication: CONSTIPATION
  7. FOSAMAX [Concomitant]
     Indication: OSTEOPOROSIS
     Dates: start: 20020605
  8. COLACE [Concomitant]
     Indication: CONSTIPATION

REACTIONS (1)
  - Electrocardiogram QT prolonged [Unknown]
